FAERS Safety Report 19181813 (Version 1)
Quarter: 2021Q2

REPORT INFORMATION
  Report Type: Spontaneous
  Country: US (occurrence: US)
  Receive Date: 20210426
  Receipt Date: 20210426
  Transmission Date: 20210717
  Serious: No
  Sender: FDA-Public Use
  Company Number: US-TAKEDA-2021TUS024994

PATIENT
  Age: 4 Year
  Sex: Male

DRUGS (1)
  1. MOTEGRITY [Suspect]
     Active Substance: PRUCALOPRIDE SUCCINATE
     Indication: OESOPHAGEAL MOTILITY DISORDER
     Route: 065

REACTIONS (3)
  - Insurance issue [Unknown]
  - Off label use [Unknown]
  - No adverse event [Unknown]
